FAERS Safety Report 20184878 (Version 1)
Quarter: 2021Q4

REPORT INFORMATION
  Report Type: Spontaneous
  Country: JP (occurrence: JP)
  Receive Date: 20211214
  Receipt Date: 20211214
  Transmission Date: 20220303
  Serious: Yes (Other)
  Sender: FDA-Public Use
  Company Number: JP-BRISTOL-MYERS SQUIBB COMPANY-BMS-2021-135017

PATIENT
  Age: 84 Year
  Sex: Male
  Weight: 50.4 kg

DRUGS (12)
  1. ELIQUIS [Suspect]
     Active Substance: APIXABAN
     Indication: Thrombosis prophylaxis
     Dosage: 2.5 MILLIGRAM, BID
     Route: 048
     Dates: start: 20210618, end: 20210716
  2. ASPIRIN [Suspect]
     Active Substance: ASPIRIN
     Indication: Thrombosis prophylaxis
     Dosage: 100 MILLIGRAM, QD
     Route: 048
     Dates: start: 20120601, end: 20210710
  3. CARVEDILOL [Concomitant]
     Active Substance: CARVEDILOL
     Indication: Product used for unknown indication
     Dosage: 3.75 MILLIGRAM, QD,AFTER DINNER
     Route: 065
     Dates: start: 20210703, end: 20210716
  4. CARVEDILOL [Concomitant]
     Active Substance: CARVEDILOL
     Dosage: 10MILLIGRAM
     Route: 065
     Dates: start: 20210717
  5. NIFEDIPINE [Concomitant]
     Active Substance: NIFEDIPINE
     Indication: Product used for unknown indication
     Dosage: 10 MILLIGRAM, QD,AFTER DINNER
     Route: 065
     Dates: start: 20210703, end: 20210706
  6. AZELNIDIPINE\OLMESARTAN MEDOXOMIL [Concomitant]
     Active Substance: AZELNIDIPINE\OLMESARTAN MEDOXOMIL
     Indication: Product used for unknown indication
     Dosage: 1(DF)LD, QD,AFTER BREAKFAST
     Route: 065
     Dates: end: 20210703
  7. PREDONINE [Concomitant]
     Active Substance: PREDNISOLONE
     Indication: Product used for unknown indication
     Dosage: 25MG,TWICE DAILY, 15 MG IN THE MORNING, 10 MG IN THE EVENING
     Route: 065
  8. SENNOSIDES A AND B [Concomitant]
     Active Substance: SENNOSIDES A AND B
     Indication: Product used for unknown indication
     Dosage: 24 MILLIGRAM, QD,AFTER DINNER
     Route: 065
  9. LEVOTHYROXINE SODIUM [Concomitant]
     Active Substance: LEVOTHYROXINE SODIUM
     Indication: Product used for unknown indication
     Dosage: 75 MICROGRAM, QD,AFTER BREAKFAST
     Route: 065
  10. NICORANDIL [Concomitant]
     Active Substance: NICORANDIL
     Indication: Product used for unknown indication
     Dosage: 15 MILLIGRAM,THREE TIMES DAILY AFTER BREAKFAST, LUNCH, AND DINNER
     Route: 065
     Dates: start: 20210703
  11. NEXIUM [Concomitant]
     Active Substance: ESOMEPRAZOLE MAGNESIUM
     Indication: Product used for unknown indication
     Dosage: 20 MILLIGRAM, QD,AFTER BREAKFAST
     Route: 065
  12. AMLODIPINE BESYLATE [Concomitant]
     Active Substance: AMLODIPINE BESYLATE
     Indication: Product used for unknown indication
     Dosage: 5 MILLIGRAM
     Route: 065
     Dates: start: 20210717

REACTIONS (5)
  - Anaemia [Recovered/Resolved]
  - Occult blood [Recovered/Resolved]
  - Vascular pseudoaneurysm [Unknown]
  - Haemorrhage [Unknown]
  - Intentional product use issue [Unknown]

NARRATIVE: CASE EVENT DATE: 20210703
